FAERS Safety Report 5407069-6 (Version None)
Quarter: 2007Q3

REPORT INFORMATION
  Report Type: 
  Country: None (occurrence: None)
  Receive Date: 20070807
  Receipt Date: 20070802
  Transmission Date: 20080115
  Serious: Yes (Hospitalization)
  Sender: FDA-Public Use
  Company Number: FR-ASTRAZENECA-2007CG01137

PATIENT
  Age: 32025 Day
  Sex: Female

DRUGS (10)
  1. TENORETIC 100 [Suspect]
     Indication: HYPERTENSION
     Dosage: 50 + 12.5 MG DAILY
     Route: 048
     Dates: end: 20070519
  2. REMINYL [Suspect]
     Indication: DEMENTIA ALZHEIMER'S TYPE
     Route: 048
  3. SYMBICORT [Concomitant]
     Route: 055
  4. MEMANTINE HCL [Concomitant]
     Indication: DEMENTIA ALZHEIMER'S TYPE
     Route: 048
  5. GABAPENTIN [Concomitant]
     Route: 048
  6. CITALOPRAM HYDROBROMIDE [Concomitant]
     Indication: DEPRESSION
     Route: 048
  7. SPIRONOLACTONE [Concomitant]
     Indication: HYPERTENSION
     Route: 048
  8. KARDEGIC [Concomitant]
  9. POTASSIUM CHLORIDE [Concomitant]
  10. LESCOL [Concomitant]

REACTIONS (4)
  - ATRIOVENTRICULAR BLOCK FIRST DEGREE [None]
  - BRADYCARDIA [None]
  - MALAISE [None]
  - SYNCOPE [None]
